FAERS Safety Report 8021890-X (Version None)
Quarter: 2012Q1

REPORT INFORMATION
  Report Type: 
  Country: None (occurrence: None)
  Receive Date: 20120104
  Receipt Date: 20111228
  Transmission Date: 20120608
  Serious: Yes (Disabling)
  Sender: FDA-Public Use
  Company Number: GB-BAYER-2011-123046

PATIENT
  Sex: Male

DRUGS (1)
  1. CIPROFLOXACIN HCL [Suspect]

REACTIONS (3)
  - TENDONITIS [None]
  - TOXICITY TO VARIOUS AGENTS [None]
  - FEELING ABNORMAL [None]
